FAERS Safety Report 16301172 (Version 7)
Quarter: 2020Q1

REPORT INFORMATION
  Report Type: Report from Study
  Country: US (occurrence: US)
  Receive Date: 20190510
  Receipt Date: 20200224
  Transmission Date: 20200409
  Serious: Yes (Hospitalization)
  Sender: FDA-Public Use
  Company Number: US-ACTELION-A-US2016-129918

PATIENT
  Age: 69 Year
  Sex: Female
  Weight: 95.24 kg

DRUGS (4)
  1. VELETRI [Suspect]
     Active Substance: EPOPROSTENOL
     Indication: PULMONARY ARTERIAL HYPERTENSION
     Dosage: 36.84 NG/KG, PER MIN
     Route: 042
  2. VELETRI [Suspect]
     Active Substance: EPOPROSTENOL
     Dosage: 35.96 NG/KG, PER MIN
     Route: 042
  3. VELETRI [Suspect]
     Active Substance: EPOPROSTENOL
     Dosage: 31.58 UNK
     Route: 042
  4. VELETRI [Suspect]
     Active Substance: EPOPROSTENOL
     Dosage: 84 NG/KG, PER MIN
     Route: 042
     Dates: start: 20141001

REACTIONS (31)
  - Device breakage [Unknown]
  - Dyspnoea exertional [Not Recovered/Not Resolved]
  - Breast pain [Unknown]
  - Diarrhoea [Not Recovered/Not Resolved]
  - Fatigue [Not Recovered/Not Resolved]
  - Myalgia [Not Recovered/Not Resolved]
  - Nausea [Not Recovered/Not Resolved]
  - Hospitalisation [Unknown]
  - Headache [Not Recovered/Not Resolved]
  - Night sweats [Not Recovered/Not Resolved]
  - Influenza [Unknown]
  - Pain in extremity [Unknown]
  - Carbon dioxide increased [Unknown]
  - Cough [Not Recovered/Not Resolved]
  - Sinusitis [Unknown]
  - Catheter site haemorrhage [Unknown]
  - Secretion discharge [Unknown]
  - Dyspnoea at rest [Not Recovered/Not Resolved]
  - Pain [Unknown]
  - Rash [Not Recovered/Not Resolved]
  - Pneumonia [Unknown]
  - Dyspnoea [Unknown]
  - Arthralgia [Unknown]
  - Swelling [Unknown]
  - Rash pruritic [Unknown]
  - Malaise [Recovering/Resolving]
  - Pain in jaw [Not Recovered/Not Resolved]
  - Musculoskeletal pain [Unknown]
  - Catheter management [Unknown]
  - Nasopharyngitis [Unknown]
  - Device malfunction [Unknown]

NARRATIVE: CASE EVENT DATE: 201809
